FAERS Safety Report 4906806-4 (Version None)
Quarter: 2006Q1

REPORT INFORMATION
  Report Type: 
  Country: None (occurrence: None)
  Receive Date: 20060207
  Receipt Date: 20060124
  Transmission Date: 20060701
  Serious: Yes (Other)
  Sender: FDA-Public Use
  Company Number: S05-FRA-04002-01

PATIENT
  Age: 32 Year
  Sex: Female

DRUGS (2)
  1. CITALOPRAM HYDROBROMIDE [Suspect]
     Indication: DEPRESSION
     Dosage: 20 MG QD PO
     Route: 048
     Dates: start: 20040223, end: 20040303
  2. LAROXYL (AMITRIPTYLIEN HYDROCHLORIDE) [Concomitant]

REACTIONS (4)
  - DRUG INTERACTION [None]
  - HYPERAESTHESIA [None]
  - SEROTONIN SYNDROME [None]
  - URINARY TRACT INFECTION [None]
